FAERS Safety Report 4315640-8 (Version None)
Quarter: 2004Q1

REPORT INFORMATION
  Report Type: 
  Country: None (occurrence: None)
  Receive Date: 20040311
  Receipt Date: 20040308
  Transmission Date: 20041129
  Serious: Yes (Hospitalization)
  Sender: FDA-Public Use
  Company Number: FR-GLAXOSMITHKLINE-B0325908A

PATIENT
  Age: 78 Year
  Sex: Female

DRUGS (2)
  1. VALACYCLOVIR HCL [Suspect]
     Route: 048
  2. PYOSTACINE [Suspect]
     Dosage: 500MG PER DAY

REACTIONS (4)
  - BRUXISM [None]
  - DROOLING [None]
  - EPILEPSY [None]
  - LOSS OF CONSCIOUSNESS [None]
